FAERS Safety Report 8507738-5 (Version None)
Quarter: 2012Q3

REPORT INFORMATION
  Report Type: 
  Country: None (occurrence: None)
  Receive Date: 20120713
  Receipt Date: 20120709
  Transmission Date: 20120928
  Serious: Yes (Hospitalization)
  Sender: FDA-Public Use
  Company Number: US-AMGEN-USASP2012023980

PATIENT
  Age: 66 Year
  Sex: Female

DRUGS (2)
  1. ENBREL [Suspect]
     Indication: RHEUMATOID ARTHRITIS
     Dosage: 50 MG, QWK
     Dates: start: 20050301, end: 20120501
  2. METHOTREXATE [Concomitant]
     Dosage: UNK

REACTIONS (10)
  - INTESTINAL OBSTRUCTION [None]
  - BALANCE DISORDER [None]
  - DRUG HYPERSENSITIVITY [None]
  - TOOTH INFECTION [None]
  - ARTHRALGIA [None]
  - VOMITING [None]
  - HOSPITALISATION [None]
  - GAIT DISTURBANCE [None]
  - DIARRHOEA [None]
  - PAIN [None]
